FAERS Safety Report 13065374 (Version 1)
Quarter: 2016Q4

REPORT INFORMATION
  Report Type: Spontaneous
  Country: DE (occurrence: DE)
  Receive Date: 20161227
  Receipt Date: 20161227
  Transmission Date: 20170207
  Serious: Yes (Hospitalization)
  Sender: FDA-Public Use
  Company Number: DE-VALIDUS PHARMACEUTICALS LLC-DE-2016VAL003229

PATIENT

DRUGS (2)
  1. CEFTRIAXONE. [Suspect]
     Active Substance: CEFTRIAXONE
     Indication: SEPSIS
     Dosage: UNK
     Dates: start: 201508, end: 201508
  2. CEFOTAXIME SODIUM [Suspect]
     Active Substance: CEFOTAXIME SODIUM
     Indication: SEPSIS
     Dosage: UNK
     Dates: start: 201508, end: 201508

REACTIONS (4)
  - Bradycardia [Recovered/Resolved]
  - Pyrexia [Recovered/Resolved]
  - Jarisch-Herxheimer reaction [Recovered/Resolved]
  - Thrombocytopenia [Recovered/Resolved]

NARRATIVE: CASE EVENT DATE: 201508
